FAERS Safety Report 20682364 (Version 1)
Quarter: 2022Q2

REPORT INFORMATION
  Report Type: Spontaneous
  Country: PT (occurrence: PT)
  Receive Date: 20220407
  Receipt Date: 20220407
  Transmission Date: 20220721
  Serious: Yes (Disabling)
  Sender: FDA-Public Use
  Company Number: None

PATIENT
  Age: 67 Year
  Sex: Female

DRUGS (1)
  1. PANTOPRAZOLE SODIUM [Suspect]
     Active Substance: PANTOPRAZOLE SODIUM
     Indication: Helicobacter gastritis
     Dosage: 80 MILLIGRAM DAILY; 40 MG + 40 MG (80 MG/DAY),THERAPY END DATE ASKU
     Route: 048
     Dates: start: 202109

REACTIONS (7)
  - Nausea [Recovering/Resolving]
  - Dizziness [Recovering/Resolving]
  - Tinnitus [Unknown]
  - Liver disorder [Unknown]
  - Sleep disorder [Unknown]
  - Dry mouth [Unknown]
  - Asthenia [Unknown]

NARRATIVE: CASE EVENT DATE: 20210901
